FAERS Safety Report 25801626 (Version 1)
Quarter: 2025Q3

REPORT INFORMATION
  Report Type: Spontaneous
  Country: US (occurrence: None)
  Receive Date: 20250912
  Receipt Date: 20250912
  Transmission Date: 20251021
  Serious: Yes (Hospitalization)
  Sender: FDA-CTU
  Company Number: None

PATIENT
  Age: 65 Year
  Sex: Male

DRUGS (22)
  1. MYCOPHENOLIC ACID [Suspect]
     Active Substance: MYCOPHENOLIC ACID
     Indication: Renal transplant
     Dosage: 180 MG TWICE A DAY ORAL ?
     Route: 048
     Dates: start: 20240320
  2. Vitamin D2 2000 units [Concomitant]
  3. PYRIDOSTIGMINE [Concomitant]
     Active Substance: PYRIDOSTIGMINE
  4. CARVEDILOL [Concomitant]
     Active Substance: CARVEDILOL
  5. FAMOTIDINE [Concomitant]
     Active Substance: FAMOTIDINE
  6. Humalog 100unit/ml [Concomitant]
  7. Lantus 100 unit/ml [Concomitant]
  8. LOPERAMIDE [Concomitant]
     Active Substance: LOPERAMIDE
  9. Nifedipine 60mg ER [Concomitant]
  10. PANTOPRAZOLE SODIUM [Concomitant]
     Active Substance: PANTOPRAZOLE SODIUM
  11. PREDNISONE [Concomitant]
     Active Substance: PREDNISONE
  12. ROSUVASTATIN [Concomitant]
     Active Substance: ROSUVASTATIN
  13. TACROLIMUS [Concomitant]
     Active Substance: TACROLIMUS
  14. TACROLIMUS [Concomitant]
     Active Substance: TACROLIMUS
  15. TAMSULOSIN [Concomitant]
     Active Substance: TAMSULOSIN
  16. LORAZEPAM [Concomitant]
     Active Substance: LORAZEPAM
  17. ALBUTEROL SULFATE [Concomitant]
     Active Substance: ALBUTEROL SULFATE
  18. ASPIRIN [Concomitant]
     Active Substance: ASPIRIN
  19. BUPROPION [Concomitant]
     Active Substance: BUPROPION
  20. Doxepin 3mg [Concomitant]
  21. GABAPENTIN [Concomitant]
     Active Substance: GABAPENTIN
  22. SERTRALINE [Concomitant]
     Active Substance: SERTRALINE HYDROCHLORIDE

REACTIONS (1)
  - Vascular graft [None]

NARRATIVE: CASE EVENT DATE: 20250902
